FAERS Safety Report 7278189-9 (Version None)
Quarter: 2011Q1

REPORT INFORMATION
  Report Type: 
  Country: None (occurrence: None)
  Receive Date: 20110207
  Receipt Date: 20110127
  Transmission Date: 20110831
  Serious: Yes (Hospitalization)
  Sender: FDA-Public Use
  Company Number: B0696261A

PATIENT
  Sex: Female

DRUGS (10)
  1. ENDOXAN [Concomitant]
     Route: 042
     Dates: start: 20100917
  2. LASIX [Concomitant]
     Dosage: 20MG PER DAY
     Route: 065
  3. TRIATEC [Concomitant]
     Dosage: 1.25MG TWICE PER DAY
     Route: 065
  4. PARACETAMOL [Concomitant]
     Route: 065
  5. UROMITEXAN [Suspect]
     Route: 042
     Dates: start: 20100917, end: 20101112
  6. PLAQUENIL [Concomitant]
     Dosage: 200MG TWICE PER DAY
     Route: 065
  7. NEXIUM [Concomitant]
     Dosage: 20MG PER DAY
     Route: 065
  8. ZOPHREN [Suspect]
     Dosage: 8MG CYCLIC
     Route: 042
     Dates: start: 20100917, end: 20101112
  9. CARDENSIEL [Concomitant]
     Dosage: 3.75MG PER DAY
     Route: 065
  10. CORTANCYL [Concomitant]
     Dosage: 60MG PER DAY
     Route: 065

REACTIONS (5)
  - PURPURA [None]
  - MOUTH HAEMORRHAGE [None]
  - EPISTAXIS [None]
  - THROMBOCYTOPENIA [None]
  - HAEMATOMA [None]
